FAERS Safety Report 21128200 (Version 1)
Quarter: 2022Q3

REPORT INFORMATION
  Report Type: Spontaneous
  Country: SK (occurrence: SK)
  Receive Date: 20220725
  Receipt Date: 20220725
  Transmission Date: 20221026
  Serious: Yes (Hospitalization, Other)
  Sender: FDA-Public Use
  Company Number: SK-BoehringerIngelheim-2022-BI-175052

PATIENT
  Age: 74 Year
  Sex: Male

DRUGS (1)
  1. PRADAXA [Suspect]
     Active Substance: DABIGATRAN ETEXILATE MESYLATE
     Indication: Atrial fibrillation
     Dosage: 150

REACTIONS (4)
  - Haematuria [Unknown]
  - Intestinal haemorrhage [Unknown]
  - Hypocoagulable state [Unknown]
  - Speech disorder [Unknown]

NARRATIVE: CASE EVENT DATE: 20220523
